FAERS Safety Report 11727560 (Version 1)
Quarter: 2015Q4

REPORT INFORMATION
  Report Type: Spontaneous
  Country: US (occurrence: None)
  Receive Date: 20151112
  Receipt Date: 20151112
  Transmission Date: 20160304
  Serious: Yes (Other)
  Sender: FDA-Public Use
  Company Number: US-MDT-ADR-2015-02133

PATIENT
  Age: 48 Year
  Sex: Male

DRUGS (2)
  1. FENTANYL INTRATHECAL 1500 MCG/ML [Suspect]
     Active Substance: FENTANYL
     Indication: MUSCLE SPASTICITY
     Dosage: 150 MCG/DAY
  2. COMPOUNDED BACLOFEN  INTRATHECAL 3000 MCG/ML [Suspect]
     Active Substance: BACLOFEN
     Indication: MUSCLE SPASTICITY
     Dosage: 300 MCG/DAY

REACTIONS (2)
  - Confusional state [None]
  - Sedation [None]
